FAERS Safety Report 18956482 (Version 1)
Quarter: 2021Q1

REPORT INFORMATION
  Report Type: Spontaneous
  Country: US (occurrence: US)
  Receive Date: 20210301
  Receipt Date: 20210301
  Transmission Date: 20210420
  Serious: Yes (Hospitalization, Other)
  Sender: FDA-Public Use
  Company Number: US-B.BRAUN MEDICAL INC.-2107462

PATIENT
  Age: 81 Year
  Sex: Male

DRUGS (1)
  1. SODIUM CHLORIDE INJECTIONS USP 0264?7800?00 0264?7800?10 [Suspect]
     Active Substance: SODIUM CHLORIDE
     Route: 040

REACTIONS (2)
  - Air embolism [None]
  - Seizure [None]
